FAERS Safety Report 9063873 (Version 1)
Quarter: 2013Q1

REPORT INFORMATION
  Report Type: Report from Study
  Country: US (occurrence: US)
  Receive Date: 20130131
  Receipt Date: 20130131
  Transmission Date: 20140127
  Serious: No
  Sender: FDA-Public Use
  Company Number: US-ABBOTT-12P-163-1013876-00

PATIENT
  Age: 34 Year
  Sex: Female

DRUGS (7)
  1. HUMIRA [Suspect]
     Indication: CROHN^S DISEASE
     Route: 058
     Dates: start: 20120806
  2. PENTASA [Concomitant]
     Indication: CROHN^S DISEASE
  3. IMURAN [Concomitant]
     Indication: CROHN^S DISEASE
  4. VITAMIN D [Concomitant]
     Indication: VITAMIN D DEFICIENCY
     Dosage: MONTHLY
  5. RANITIDINE [Concomitant]
     Indication: GASTROOESOPHAGEAL REFLUX DISEASE
  6. FERROUS SULFATE [Concomitant]
     Indication: IRON DEFICIENCY
     Dosage: DAILY
  7. NEXIUM [Concomitant]

REACTIONS (1)
  - Drug ineffective [Not Recovered/Not Resolved]
